FAERS Safety Report 5874938-2 (Version None)
Quarter: 2008Q3

REPORT INFORMATION
  Report Type: 
  Country: None (occurrence: None)
  Receive Date: 20080909
  Receipt Date: 20080903
  Transmission Date: 20090109
  Serious: Yes (Other)
  Sender: FDA-Public Use
  Company Number: US-ASTRAZENECA-2008UW18163

PATIENT
  Age: 83 Year
  Sex: Male
  Weight: 72.6 kg

DRUGS (11)
  1. CASODEX [Suspect]
     Indication: PROSTATE CANCER
     Route: 048
     Dates: start: 20040101
  2. FISH OIL [Concomitant]
  3. COENZYME Q10 [Concomitant]
  4. SAM E [Concomitant]
  5. POMEGRANATE EXTRACT [Concomitant]
  6. COUMADIN [Concomitant]
  7. MAXZIDE [Concomitant]
  8. LUPRON [Concomitant]
  9. TIAZAC [Concomitant]
  10. PREDNISONE TAB [Concomitant]
  11. OXYGEN [Concomitant]

REACTIONS (4)
  - ATRIAL FIBRILLATION [None]
  - DYSPNOEA [None]
  - LUNG DISORDER [None]
  - TOTAL LUNG CAPACITY DECREASED [None]
